FAERS Safety Report 8170101-3 (Version None)
Quarter: 2012Q1

REPORT INFORMATION
  Report Type: 
  Country: None (occurrence: None)
  Receive Date: 20120228
  Receipt Date: 20120220
  Transmission Date: 20120608
  Serious: Yes (Other)
  Sender: FDA-Public Use
  Company Number: FR-AMGEN-FRASP2012010938

PATIENT
  Sex: Female

DRUGS (3)
  1. STATIN                             /00848101/ [Concomitant]
  2. ANTINEOPLASTIC AGENTS [Concomitant]
  3. NEULASTA [Suspect]
     Indication: NEUTROPENIA

REACTIONS (1)
  - BLOOD LACTATE DEHYDROGENASE INCREASED [None]
